FAERS Safety Report 10815022 (Version 1)
Quarter: 2015Q1

REPORT INFORMATION
  Report Type: Report from Study
  Country: US (occurrence: US)
  Receive Date: 20150218
  Receipt Date: 20150218
  Transmission Date: 20150721
  Serious: Yes (Death)
  Sender: FDA-Public Use
  Company Number: US-PFIZER INC-2015060166

PATIENT

DRUGS (17)
  1. CYCLOPHOSPHAMIDE. [Suspect]
     Active Substance: CYCLOPHOSPHAMIDE
     Indication: MANTLE CELL LYMPHOMA
     Dosage: 300 MG/M2, CYCLIC, OVER 3 HRS QX12HRS FOR SIX DOSES ON DAYS 2-4
     Route: 042
  2. G-CSF [Concomitant]
     Active Substance: GRANULOCYTE COLONY-STIMULATING FACTOR NOS
     Indication: PREMEDICATION
     Dosage: 0.005 MG/KG, CYCLIC, DAILY FOR 10 DAYS
     Route: 058
  3. LEVOFLOXACIN. [Concomitant]
     Active Substance: LEVOFLOXACIN
     Indication: PREMEDICATION
     Dosage: 500 MG, CYCLIC, DAILY FOR 10 DAYS
     Route: 048
  4. METHOTREXATE SODIUM. [Suspect]
     Active Substance: METHOTREXATE SODIUM
     Indication: MANTLE CELL LYMPHOMA
     Dosage: 200 MG/M2, CYCLIC, OVER 2 HOURS D 2
     Route: 041
  5. METHOTREXATE SODIUM. [Suspect]
     Active Substance: METHOTREXATE SODIUM
     Dosage: 800 MG/M2, CYCLIC, 22 HRS D2
     Route: 041
  6. VALACYCLOVIR [Concomitant]
     Active Substance: VALACYCLOVIR HYDROCHLORIDE
     Indication: PREMEDICATION
     Dosage: 500 MG, CYCLIC, DAILY FOR 10 DAYS
     Route: 048
  7. CYTARABINE. [Suspect]
     Active Substance: CYTARABINE
     Indication: MANTLE CELL LYMPHOMA
     Dosage: 3000 MG/M2, CYCLIC, OVER 2 HRS Q12HRS FOR FOUR DOSES ON DAYS 3 AND 4
     Route: 042
  8. VINCRISTINE [Suspect]
     Active Substance: VINCRISTINE
     Indication: MANTLE CELL LYMPHOMA
     Dosage: 1.4 MG/M2, CYCLIC, D5+D12
     Route: 042
  9. MESNA. [Concomitant]
     Active Substance: MESNA
     Indication: PREMEDICATION
     Dosage: 600 MG/M2, CYCLIC, DAILY ON DAYS 2,3,4
     Route: 042
  10. FLUCONAZOLE. [Concomitant]
     Active Substance: FLUCONAZOLE
     Indication: PREMEDICATION
     Dosage: 100 MG, CYCLIC, DAILY FOR 10 DAYS
     Route: 048
  11. DOXORUBICIN HCL [Suspect]
     Active Substance: DOXORUBICIN HYDROCHLORIDE
     Indication: MANTLE CELL LYMPHOMA
     Dosage: 16.7 MG/M2, OVER 24 HOURS DAILY ON DAYS 5, 6, AND 7
     Route: 041
  12. RITUXIMAB [Suspect]
     Active Substance: RITUXIMAB
     Indication: MANTLE CELL LYMPHOMA
     Dosage: 375 MG/M2, CYCLIC, D1
  13. PREDNISOLONE. [Concomitant]
     Active Substance: PREDNISOLONE
     Indication: PREMEDICATION
     Dosage: 4 GTT (2 DROPS IN EACH EYE), 4X/DAY
     Route: 047
  14. DEXAMETHASONE. [Suspect]
     Active Substance: DEXAMETHASONE
     Indication: MANTLE CELL LYMPHOMA
     Dosage: 40 MG, CYCLIC, IV OR PO, D2-5 AND D12-15
  15. CIPROFLOXACIN. [Concomitant]
     Active Substance: CIPROFLOXACIN
     Indication: PREMEDICATION
  16. FOLINIC ACID [Concomitant]
     Active Substance: LEUCOVORIN
     Indication: PREMEDICATION
     Dosage: 50 MG, CYCLIC
     Route: 048
  17. FOLINIC ACID [Concomitant]
     Active Substance: LEUCOVORIN
     Dosage: 15 MG, CYCLIC
     Route: 048

REACTIONS (1)
  - Bacterial infection [Fatal]
